FAERS Safety Report 9791728 (Version 1)
Quarter: 2014Q1

REPORT INFORMATION
  Report Type: Spontaneous
  Country: GB (occurrence: GB)
  Receive Date: 20140102
  Receipt Date: 20140102
  Transmission Date: 20141002
  Serious: Yes (Life-Threatening)
  Sender: FDA-Public Use
  Company Number: GB-RANBAXY-2013R1-76499

PATIENT
  Age: 41 Year
  Sex: Male
  Weight: 64 kg

DRUGS (1)
  1. CODEINE [Suspect]
     Indication: PRODUCT USED FOR UNKNOWN INDICATION
     Route: 065
     Dates: start: 20131211

REACTIONS (1)
  - Anaphylactic reaction [Recovering/Resolving]
